FAERS Safety Report 10342275 (Version 4)
Quarter: 2022Q4

REPORT INFORMATION
  Report Type: Spontaneous
  Country: FR (occurrence: FR)
  Receive Date: 20140725
  Receipt Date: 20221202
  Transmission Date: 20230113
  Serious: Yes (Hospitalization, Other)
  Sender: FDA-Public Use
  Company Number: FR-JNJFOC-20140709992

PATIENT

DRUGS (2)
  1. RISPERDAL [Suspect]
     Active Substance: RISPERIDONE
     Indication: Product used for unknown indication
     Dosage: 2.5  /-1.6 MG/DAY
     Route: 065
  2. ARIPIPRAZOLE [Suspect]
     Active Substance: ARIPIPRAZOLE
     Indication: Product used for unknown indication
     Dosage: 7.5 +- 2.4 MG/D
     Route: 065

REACTIONS (29)
  - Suicidal ideation [Unknown]
  - Suicidal behaviour [Unknown]
  - Dependence [Unknown]
  - Catatonia [Unknown]
  - Stab wound [Unknown]
  - Dystonia [Unknown]
  - Muscular weakness [Unknown]
  - Extrapyramidal disorder [Unknown]
  - Akathisia [Unknown]
  - Weight increased [Unknown]
  - Body mass index increased [Unknown]
  - Hallucination [Unknown]
  - Affect lability [Unknown]
  - Apathy [Unknown]
  - Irritability [Unknown]
  - Tachyphrenia [Unknown]
  - Encopresis [Unknown]
  - Scar [Unknown]
  - Aggression [Unknown]
  - Behaviour disorder [Unknown]
  - Akathisia [Unknown]
  - Euphoric mood [Unknown]
  - Depressed mood [Unknown]
  - Disturbance in attention [Unknown]
  - Anxiety [Unknown]
  - Sexual dysfunction [Unknown]
  - Psychotic disorder [Unknown]
  - Enuresis [Unknown]
  - Abnormal behaviour [Unknown]
